FAERS Safety Report 21334439 (Version 2)
Quarter: 2022Q3

REPORT INFORMATION
  Report Type: Spontaneous
  Country: CA (occurrence: CA)
  Receive Date: 20220914
  Receipt Date: 20220928
  Transmission Date: 20221026
  Serious: Yes (Hospitalization, Disabling)
  Sender: FDA-Public Use
  Company Number: CA-TEVA-2022-CA-2071900

PATIENT
  Age: 20 Month
  Sex: Male

DRUGS (2)
  1. MORPHINE [Suspect]
     Active Substance: MORPHINE
     Indication: Postoperative analgesia
     Route: 048
  2. MORPHINE [Suspect]
     Active Substance: MORPHINE
     Dosage: DOSAGE: 10MG/ML
     Route: 048

REACTIONS (2)
  - Toxic leukoencephalopathy [Not Recovered/Not Resolved]
  - Overdose [Unknown]
